FAERS Safety Report 5570597-7 (Version None)
Quarter: 2007Q4

REPORT INFORMATION
  Report Type: 
  Country: None (occurrence: None)
  Receive Date: 20071219
  Receipt Date: 20071212
  Transmission Date: 20080405
  Serious: Yes (Hospitalization)
  Sender: FDA-Public Use
  Company Number: 2007BI023642

PATIENT
  Age: 45 Year
  Sex: Female
  Weight: 76.2043 kg

DRUGS (1)
  1. AVONEX [Suspect]
     Indication: MULTIPLE SCLEROSIS
     Dosage: 30 UG,QW;IM
     Route: 030
     Dates: start: 19991001, end: 20010601

REACTIONS (4)
  - ADVERSE DRUG REACTION [None]
  - CONVULSION [None]
  - SEPSIS [None]
  - URINARY TRACT INFECTION [None]
